FAERS Safety Report 4943092-3 (Version None)
Quarter: 2006Q1

REPORT INFORMATION
  Report Type: 
  Country: None (occurrence: None)
  Receive Date: 20060314
  Receipt Date: 20060303
  Transmission Date: 20060701
  Serious: Yes (Disabling)
  Sender: FDA-Public Use
  Company Number: JP-MERCK-0603USA01384

PATIENT
  Age: 65 Year
  Sex: Male

DRUGS (1)
  1. ZOCOR [Suspect]
     Route: 048
     Dates: start: 19910101

REACTIONS (1)
  - CEREBRAL HAEMORRHAGE [None]
